FAERS Safety Report 4549228-0 (Version None)
Quarter: 2005Q1

REPORT INFORMATION
  Report Type: 
  Country: None (occurrence: None)
  Receive Date: 20041230
  Receipt Date: 20040524
  Transmission Date: 20050727
  Serious: Yes (Hospitalization, Other)
  Sender: FDA-Public Use
  Company Number: 04-05-0743

PATIENT
  Age: 54 Year
  Sex: Female
  Weight: 86.1834 kg

DRUGS (6)
  1. CLOZAPINE [Suspect]
     Indication: SCHIZOPHRENIA, PARANOID TYPE
     Dosage: 100MG QAM ORAL; 200MG HS ORAL
     Route: 048
     Dates: start: 19990501, end: 20040521
  2. CLOZAPINE [Suspect]
     Indication: SCHIZOPHRENIA, PARANOID TYPE
     Dosage: 100MG QAM ORAL; 200MG HS ORAL
     Route: 048
     Dates: start: 19990501, end: 20040521
  3. RISPERDAL [Concomitant]
  4. ATIVAN [Concomitant]
  5. DITROPAN XL [Concomitant]
  6. EXELON [Concomitant]

REACTIONS (1)
  - AGRANULOCYTOSIS [None]
